FAERS Safety Report 19904539 (Version 1)
Quarter: 2021Q4

REPORT INFORMATION
  Report Type: Spontaneous
  Country: CN (occurrence: CN)
  Receive Date: 20211001
  Receipt Date: 20211001
  Transmission Date: 20220303
  Serious: Yes (Hospitalization, Other)
  Sender: FDA-Public Use
  Company Number: 2021A746581

PATIENT
  Age: 24107 Day
  Sex: Male
  Weight: 70 kg

DRUGS (3)
  1. OSIMERTINIB MESYLATE [Suspect]
     Active Substance: OSIMERTINIB MESYLATE
     Indication: Targeted cancer therapy
     Route: 048
     Dates: start: 20210308, end: 20210922
  2. LEUCOGEN [Concomitant]
     Active Substance: LEUCOGEN
     Indication: Platelet count decreased
     Route: 048
  3. HUMAN INTERLEUKIN-11 [Concomitant]
     Indication: Platelet count decreased
     Route: 058

REACTIONS (1)
  - Myelosuppression [Unknown]

NARRATIVE: CASE EVENT DATE: 20210913
